FAERS Safety Report 19969594 (Version 3)
Quarter: 2021Q4

REPORT INFORMATION
  Report Type: Report from Study
  Country: US (occurrence: US)
  Receive Date: 20211019
  Receipt Date: 20211126
  Transmission Date: 20220303
  Serious: Yes (Other)
  Sender: FDA-Public Use
  Company Number: US-ABBVIE-21K-163-4122928-00

PATIENT
  Age: 69 Year
  Sex: Female

DRUGS (1)
  1. RINVOQ [Suspect]
     Active Substance: UPADACITINIB
     Indication: Rheumatoid arthritis
     Route: 048
     Dates: start: 202109, end: 202109

REACTIONS (4)
  - Myocardial infarction [Unknown]
  - Illness [Unknown]
  - Malaise [Unknown]
  - Arthritis [Unknown]

NARRATIVE: CASE EVENT DATE: 20210901
